FAERS Safety Report 9309263 (Version 3)
Quarter: 2014Q4

REPORT INFORMATION
  Report Type: Spontaneous
  Country: US (occurrence: US)
  Receive Date: 20130525
  Receipt Date: 20141112
  Transmission Date: 20150529
  Serious: Yes (Other)
  Sender: FDA-Public Use
  Company Number: US-BRISTOL-MYERS SQUIBB COMPANY-18578872

PATIENT
  Age: 53 Year
  Sex: Female
  Weight: 69.39 kg

DRUGS (4)
  1. JANUVIA [Concomitant]
     Active Substance: SITAGLIPTIN PHOSPHATE
  2. BYDUREON [Suspect]
     Active Substance: EXENATIDE
     Indication: TYPE 2 DIABETES MELLITUS
     Dosage: LOT AAA0388-EXP:AUG2016
     Route: 058
     Dates: start: 20130107
  3. EXENATIDE UNK STRENGTH PEN, DISPOSABLE DEVICE [Concomitant]
     Active Substance: EXENATIDE
  4. BYETTA [Suspect]
     Active Substance: EXENATIDE
     Indication: TYPE 2 DIABETES MELLITUS
     Route: 058

REACTIONS (6)
  - Gastrointestinal sounds abnormal [Recovered/Resolved]
  - Weight decreased [Unknown]
  - Foot operation [Unknown]
  - Sinus operation [Unknown]
  - Blood glucose increased [Not Recovered/Not Resolved]
  - Blood glucose decreased [Unknown]

NARRATIVE: CASE EVENT DATE: 20130108
